FAERS Safety Report 8802770 (Version 1)
Quarter: 2012Q4

REPORT INFORMATION
  Report Type: 
  Country: US (occurrence: US)
  Receive Date: 20120921
  Receipt Date: 20120921
  Transmission Date: 20130627
  Serious: No
  Sender: FDA-Public Use
  Company Number: US-ASTRAZENECA-2012SE71381

PATIENT
  Age: 51 Year
  Sex: Female

DRUGS (3)
  1. VIMOVO [Suspect]
     Indication: GASTROOESOPHAGEAL REFLUX DISEASE
     Route: 048
  2. VIMOVO [Suspect]
     Indication: PAIN
     Route: 048
  3. IBUPROFEN [Concomitant]
     Indication: PAIN

REACTIONS (2)
  - Arthralgia [Unknown]
  - Drug dose omission [Unknown]
